FAERS Safety Report 10248865 (Version 1)
Quarter: 2014Q2

REPORT INFORMATION
  Report Type: Report from Study
  Country: CA (occurrence: CA)
  Receive Date: 20140620
  Receipt Date: 20140620
  Transmission Date: 20141212
  Serious: Yes (Hospitalization)
  Sender: FDA-Public Use
  Company Number: CA-JNJFOC-20140610326

PATIENT
  Age: 40 Year
  Sex: Male
  Weight: 80.5 kg

DRUGS (2)
  1. REMICADE [Suspect]
     Indication: CROHN^S DISEASE
     Route: 042
  2. VITAMIN B-COMPLEX [Concomitant]
     Route: 065

REACTIONS (2)
  - Scar [Recovered/Resolved]
  - Intestinal obstruction [Recovered/Resolved]
